FAERS Safety Report 8777675 (Version 3)
Quarter: 2012Q4

REPORT INFORMATION
  Report Type: 
  Country: US (occurrence: US)
  Receive Date: 20120912
  Receipt Date: 20121224
  Transmission Date: 20130627
  Serious: Yes (Hospitalization, Other)
  Sender: FDA-Public Use
  Company Number: US-NAPPMUNDI-USA-2012-0092583

PATIENT
  Age: 51 Year
  Sex: Female

DRUGS (1)
  1. DILAUDID INJECTION [Suspect]
     Indication: PAIN
     Dosage: UNK
     Route: 042
     Dates: start: 201112

REACTIONS (6)
  - Unresponsive to stimuli [Unknown]
  - Confusional state [Unknown]
  - Cough [Unknown]
  - Dyspnoea [Unknown]
  - Speech disorder [Unknown]
  - Drug ineffective [Unknown]
